FAERS Safety Report 9065659 (Version 1)
Quarter: 2013Q1

REPORT INFORMATION
  Report Type: Spontaneous
  Country: US (occurrence: US)
  Receive Date: 20130214
  Receipt Date: 20130214
  Transmission Date: 20140127
  Serious: Yes (Other)
  Sender: FDA-Public Use
  Company Number: US-PERRIGO-13US001070

PATIENT
  Age: 78 None
  Sex: Male
  Weight: 83.9 kg

DRUGS (5)
  1. IBUPROFEN 200MG-DIPHENHYDRAMINE CITRATE 38 MG 050 [Suspect]
     Indication: MIDDLE INSOMNIA
     Dosage: ONE TABLET, NIGHTLY
     Route: 048
     Dates: start: 201301, end: 20130127
  2. IBUPROFEN 200MG-DIPHENHYDRAMINE CITRATE 38 MG 050 [Suspect]
     Indication: BACK PAIN
     Dosage: ONE TABLET, NIGHTLY
     Route: 048
     Dates: start: 2011, end: 201301
  3. HALLS [Suspect]
     Indication: COUGH
     Route: 002
     Dates: start: 201301, end: 20130127
  4. METOPROLOL TARTRATE [Concomitant]
     Indication: HYPERTENSION
     Dosage: 25 MG, BID
     Route: 048
  5. LISINOPRIL [Concomitant]
     Indication: HYPERTENSION
     Dosage: UNK, ONE TABLET DAILY
     Route: 048

REACTIONS (6)
  - Loss of consciousness [Recovered/Resolved]
  - Memory impairment [Recovered/Resolved]
  - Incoherent [Recovered/Resolved]
  - Feeling abnormal [Recovered/Resolved]
  - Underdose [Recovered/Resolved]
  - Incorrect drug administration duration [Recovered/Resolved]
